FAERS Safety Report 9245007 (Version 1)
Quarter: 2013Q1

REPORT INFORMATION
  Report Type: Spontaneous
  Country: US (occurrence: None)
  Receive Date: 20121130
  Receipt Date: 20121130
  Transmission Date: 20140127
  Serious: Yes (Other)
  Sender: FDA-Public Use
  Company Number: PHEH2011US012223

PATIENT
  Age: 69 Year
  Sex: Female

DRUGS (8)
  1. TEKTURNA [Suspect]
     Indication: HYPERTENSION
  2. ASPIRIN (ACETYLSALICYLIC ACID0 [Concomitant]
  3. FISH OIL (FISH OIL) [Concomitant]
  4. CALTRATE (CALCIUM CARBONATE) [Concomitant]
  5. CENTRUM SILVER (ASCORBIC ACID, CALCIUM, MINERALS NOS, RETINOL, TOCOPHERYL ACETATE, VITAMIN B NOS, VITAMINS NOS, ZINC) [Concomitant]
  6. ATIVAN (LORAZEPAM) [Concomitant]
  7. DRAMAMINE (DIMENHYDRINATE) [Concomitant]
  8. MECLIZINE HYDROCHLORIDE (MECLOZINE HYDROCHLORIDE) [Concomitant]

REACTIONS (2)
  - Hypertension [None]
  - Vertigo [None]
